FAERS Safety Report 6469136-8 (Version None)
Quarter: 2009Q4

REPORT INFORMATION
  Report Type: 
  Country: None (occurrence: None)
  Receive Date: 20091203
  Receipt Date: 20071010
  Transmission Date: 20100525
  Serious: Yes (Hospitalization)
  Sender: FDA-Public Use
  Company Number: US-ELI_LILLY_AND_COMPANY-US200707005263

PATIENT
  Sex: Male
  Weight: 90.703 kg

DRUGS (8)
  1. ZYPREXA [Suspect]
     Dosage: 10 MG, UNK
     Dates: start: 20001021
  2. ZYPREXA [Suspect]
     Dosage: 15 MG, UNK
     Dates: end: 20040626
  3. ABILIFY [Concomitant]
     Dates: start: 20040608, end: 20040712
  4. SEROQUEL [Concomitant]
     Dates: start: 20001227
  5. RISPERDAL [Concomitant]
     Dates: start: 20000904, end: 20010201
  6. GEODON [Concomitant]
     Dates: start: 20030117
  7. LITHIUM [Concomitant]
     Dates: start: 20001014, end: 20020616
  8. WELLBUTRIN [Concomitant]
     Dates: start: 20001030, end: 20010919

REACTIONS (3)
  - GALLBLADDER OPERATION [None]
  - TYPE 2 DIABETES MELLITUS [None]
  - WEIGHT INCREASED [None]
